FAERS Safety Report 6139002-6 (Version None)
Quarter: 2009Q1

REPORT INFORMATION
  Report Type: 
  Country: None (occurrence: None)
  Receive Date: 20090327
  Receipt Date: 20090311
  Transmission Date: 20090719
  Serious: Yes (Hospitalization)
  Sender: FDA-Public Use
  Company Number: 2009-192964-NL

PATIENT
  Age: 33 Year
  Sex: Female

DRUGS (2)
  1. FOLLITROPIN BETA [Suspect]
     Dosage: DF
  2. CYCLOFENIL [Concomitant]

REACTIONS (1)
  - ECTOPIC PREGNANCY [None]
